FAERS Safety Report 6634969-1 (Version None)
Quarter: 2010Q1

REPORT INFORMATION
  Report Type: 
  Country: None (occurrence: None)
  Receive Date: 20100315
  Receipt Date: 20100303
  Transmission Date: 20100710
  Serious: Yes (Hospitalization)
  Sender: FDA-Public Use
  Company Number: FR-SANOFI-AVENTIS-2010SA011964

PATIENT
  Age: 69 Year
  Sex: Female
  Weight: 59 kg

DRUGS (10)
  1. LASILIX [Suspect]
     Route: 048
     Dates: start: 19990101
  2. ALLOPURINOL [Suspect]
     Indication: DRUG USE FOR UNKNOWN INDICATION
     Route: 048
     Dates: start: 20070301, end: 20100104
  3. ALLOPURINOL [Suspect]
     Route: 048
  4. ROSUVASTATIN [Suspect]
     Route: 048
     Dates: start: 20070917, end: 20100204
  5. STRONTIUM RANELATE [Suspect]
     Indication: OSTEOPOROSIS
     Route: 048
     Dates: start: 20070723
  6. INIPOMP [Suspect]
     Indication: GASTRODUODENAL ULCER
     Route: 048
  7. PREDNISONE TAB [Concomitant]
     Route: 048
  8. DIFFU K [Concomitant]
     Route: 048
  9. VERAPAMIL [Concomitant]
     Route: 048
  10. LACTULOSE [Concomitant]
     Dosage: DOSE:1 UNIT(S)
     Route: 048

REACTIONS (5)
  - AXONAL NEUROPATHY [None]
  - BLOOD CREATINE PHOSPHOKINASE INCREASED [None]
  - MYALGIA [None]
  - OSTEOPOROSIS [None]
  - RENAL FAILURE CHRONIC [None]
